FAERS Safety Report 9711735 (Version 2)
Quarter: 2013Q4

REPORT INFORMATION
  Report Type: Spontaneous
  Country: SI (occurrence: SI)
  Receive Date: 20131126
  Receipt Date: 20131226
  Transmission Date: 20140711
  Serious: Yes (Hospitalization)
  Sender: FDA-Public Use
  Company Number: SI-B.I. PHARMACEUTICALS,INC./RIDGEFIELD-2013-BI-37881SL

PATIENT
  Age: 81 Year
  Sex: Male

DRUGS (3)
  1. PRADAXA [Suspect]
     Indication: CEREBROVASCULAR ACCIDENT PROPHYLAXIS
     Dosage: 300 MG
     Route: 048
  2. PRADAXA [Suspect]
     Indication: ATRIAL FIBRILLATION
     Dosage: 220 MG
     Route: 048
  3. AMLESSA/ AMLODIPINE (5 OR 10 MG) + TERC-BUTILAMINI PERINDOPRILATE (4 M [Concomitant]
     Indication: HYPERTENSION
     Dosage: 4 MG
     Route: 048

REACTIONS (1)
  - Ischaemic stroke [Unknown]
